FAERS Safety Report 5316920-X (Version None)
Quarter: 2007Q2

REPORT INFORMATION
  Report Type: 
  Country: None (occurrence: None)
  Receive Date: 20070504
  Receipt Date: 20070502
  Transmission Date: 20071010
  Serious: Yes (Disabling, Other)
  Sender: FDA-Public Use
  Company Number: GB-BRISTOL-MYERS SQUIBB COMPANY-13477799

PATIENT
  Age: 36 Year
  Sex: Male

DRUGS (2)
  1. ABILIFY [Suspect]
     Route: 048
     Dates: start: 20060406, end: 20060413
  2. OLANZAPINE [Concomitant]
     Route: 048
     Dates: start: 20051114, end: 20070427

REACTIONS (2)
  - CONVULSION [None]
  - SYNCOPE [None]
